FAERS Safety Report 4604904-6 (Version None)
Quarter: 2005Q1

REPORT INFORMATION
  Report Type: 
  Country: None (occurrence: None)
  Receive Date: 20050310
  Receipt Date: 20050310
  Transmission Date: 20050727
  Serious: Yes (Life-Threatening, Hospitalization)
  Sender: FDA-Public Use
  Company Number: None

PATIENT
  Sex: Female

DRUGS (1)
  1. PROPYLTHIOURACIL [Suspect]
     Indication: HYPERTHYROIDISM
     Dosage: 150MG   Q8HR   ORAL
     Route: 048
     Dates: start: 20030902, end: 20040404

REACTIONS (3)
  - CONDITION AGGRAVATED [None]
  - HEPATIC FAILURE [None]
  - IDIOSYNCRATIC DRUG REACTION [None]
